FAERS Safety Report 18322104 (Version 1)
Quarter: 2020Q3

REPORT INFORMATION
  Report Type: Spontaneous
  Country: US (occurrence: US)
  Receive Date: 20200929
  Receipt Date: 20200929
  Transmission Date: 20201103
  Serious: Yes (Disabling, Other)
  Sender: FDA-Public Use
  Company Number: US-REGENERON PHARMACEUTICALS, INC.-2020-77659

PATIENT

DRUGS (3)
  1. EYLEA [Suspect]
     Active Substance: AFLIBERCEPT
     Indication: AGE-RELATED MACULAR DEGENERATION
     Dosage: 2 MG, Q4W, BILATERALLY
     Route: 031
  2. EYLEA [Suspect]
     Active Substance: AFLIBERCEPT
     Dosage: 2 MG, UNK
     Route: 031
     Dates: start: 202007, end: 202007
  3. EYLEA [Suspect]
     Active Substance: AFLIBERCEPT
     Dosage: 2 MG, OCCASIONALLY
     Route: 031
     Dates: start: 2015, end: 2019

REACTIONS (6)
  - Hypoacusis [Unknown]
  - Lacrimation increased [Unknown]
  - Eye pain [Unknown]
  - Drug ineffective [Unknown]
  - Blindness [Unknown]
  - Quadrantanopia [Unknown]
